FAERS Safety Report 13331343 (Version 1)
Quarter: 2017Q1

REPORT INFORMATION
  Report Type: Report from Study
  Country: VE (occurrence: VE)
  Receive Date: 20170313
  Receipt Date: 20170313
  Transmission Date: 20170428
  Serious: Yes (Death, Hospitalization)
  Sender: FDA-Public Use
  Company Number: PHHY2017VE037754

PATIENT
  Age: 8 Year
  Sex: Male

DRUGS (1)
  1. EXJADE [Suspect]
     Active Substance: DEFERASIROX
     Indication: ANAEMIA
     Dosage: 500 MG, QD
     Route: 065
     Dates: start: 20150512

REACTIONS (3)
  - Cerebrovascular accident [Unknown]
  - Respiratory arrest [Fatal]
  - Bacterial infection [Unknown]

NARRATIVE: CASE EVENT DATE: 201608
